FAERS Safety Report 9037297 (Version 1)
Quarter: 2013Q1

REPORT INFORMATION
  Report Type: Spontaneous
  Country: US (occurrence: None)
  Receive Date: 20130123
  Receipt Date: 20130123
  Transmission Date: 20140127
  Serious: Yes (Life-Threatening, Hospitalization, Disabling)
  Sender: FDA-Public Use
  Company Number: None

PATIENT
  Age: 40 Year
  Sex: Female
  Weight: 63.5 kg

DRUGS (1)
  1. SAVELLA 12.5 MG FOREST PHARMACEUTICALS [Suspect]
     Route: 048
     Dates: start: 20110511, end: 20130115

REACTIONS (1)
  - Atrial fibrillation [None]
